FAERS Safety Report 10568752 (Version 3)
Quarter: 2015Q1

REPORT INFORMATION
  Report Type: Report from Study
  Country: US (occurrence: US)
  Receive Date: 20141106
  Receipt Date: 20150112
  Transmission Date: 20150720
  Serious: Yes (Other)
  Sender: FDA-Public Use
  Company Number: US-SA-2014SA137734

PATIENT
  Age: 62 Year
  Sex: Female

DRUGS (1)
  1. AUBAGIO [Suspect]
     Active Substance: TERIFLUNOMIDE
     Indication: MULTIPLE SCLEROSIS
     Route: 048
     Dates: start: 20140710, end: 20150101

REACTIONS (8)
  - Unevaluable event [Unknown]
  - Headache [Unknown]
  - Rectal haemorrhage [Unknown]
  - Formication [Unknown]
  - Diarrhoea [Unknown]
  - Constipation [Unknown]
  - Malaise [Unknown]
  - Alopecia [Unknown]
